FAERS Safety Report 17646345 (Version 1)
Quarter: 2020Q2

REPORT INFORMATION
  Report Type: Spontaneous
  Country: FR (occurrence: FR)
  Receive Date: 20200408
  Receipt Date: 20200408
  Transmission Date: 20200713
  Serious: Yes (Hospitalization)
  Sender: FDA-Public Use
  Company Number: NVSC2020FR094580

PATIENT
  Sex: Male

DRUGS (4)
  1. ENTRESTO [Suspect]
     Active Substance: SACUBITRIL\VALSARTAN
     Indication: CARDIAC FAILURE
     Dosage: 1 DF, BID (SACUBITRIL 24 MG/ VALSARTAN 26 MG)
     Route: 065
     Dates: start: 20190813
  2. ENTRESTO [Suspect]
     Active Substance: SACUBITRIL\VALSARTAN
     Dosage: 0.5 DF, QD (SACUBITRIL 49 MG/ VALSARTAN 51 MG)
     Route: 065
  3. ENTRESTO [Suspect]
     Active Substance: SACUBITRIL\VALSARTAN
     Dosage: 1 DF, BID (SACUBITRIL 49 MG/ VALSARTAN 51 MG)
     Route: 065
  4. ENTRESTO [Suspect]
     Active Substance: SACUBITRIL\VALSARTAN
     Dosage: 1 DF, QD (SACUBITRIL 24 MG/ VALSARTAN 26 MG)
     Route: 065

REACTIONS (3)
  - Amnesia [Unknown]
  - Wrong technique in product usage process [Unknown]
  - Prescribed underdose [Unknown]
